FAERS Safety Report 9995945 (Version 1)
Quarter: 2014Q1

REPORT INFORMATION
  Report Type: Spontaneous
  Country: US (occurrence: None)
  Receive Date: 20140218
  Receipt Date: 20140218
  Transmission Date: 20141002
  Serious: No
  Sender: FDA-Public Use
  Company Number: 1000052123

PATIENT
  Age: 54 Year
  Sex: Female

DRUGS (3)
  1. VIIBRYD [Suspect]
     Indication: DEPRESSION
     Route: 048
     Dates: start: 20131207, end: 20131213
  2. NEFAZODONE [Suspect]
     Indication: DEPRESSION
  3. TRAZODONE (TRAZODONE) (TRAZODONE) [Concomitant]

REACTIONS (4)
  - Somnolence [None]
  - Nausea [None]
  - Dry mouth [None]
  - Dizziness [None]
